FAERS Safety Report 8398554 (Version 3)
Quarter: 2020Q3

REPORT INFORMATION
  Report Type: Spontaneous
  Country: JP (occurrence: JP)
  Receive Date: 20120209
  Receipt Date: 20200928
  Transmission Date: 20201103
  Serious: Yes (Death, Other)
  Sender: FDA-Public Use
  Company Number: PHHY2012JP010470

PATIENT
  Age: 63 Year
  Sex: Female

DRUGS (6)
  1. PREDONINE [Concomitant]
     Active Substance: PREDNISOLONE
     Indication: LIVER TRANSPLANT
     Dosage: 7.5 MG, QD
     Route: 048
  2. LASIX [Concomitant]
     Active Substance: FUROSEMIDE
     Indication: LIVER TRANSPLANT
     Dosage: UNK
     Route: 048
  3. NEORAL [Suspect]
     Active Substance: CYCLOSPORINE
     Indication: LIVER TRANSPLANT
     Dosage: 5 ML, BID
     Route: 048
     Dates: start: 20111128, end: 20111130
  4. WARFARIN [Concomitant]
     Active Substance: WARFARIN
     Indication: LIVER TRANSPLANT
     Dosage: UNK
     Route: 048
  5. AMLODIN [Concomitant]
     Active Substance: AMLODIPINE BESYLATE
     Indication: LIVER TRANSPLANT
     Dosage: 2.5 MG, QD
     Route: 048
  6. NEORAL [Suspect]
     Active Substance: CYCLOSPORINE
     Indication: LIVER TRANSPLANT
     Dosage: 120 MG
     Route: 048
     Dates: end: 20111127

REACTIONS (10)
  - Blood pressure decreased [Fatal]
  - Depressed level of consciousness [Unknown]
  - Hepatic failure [Fatal]
  - Concomitant disease aggravated [Fatal]
  - Respiratory failure [Fatal]
  - Immunosuppressant drug level increased [Unknown]
  - Renal failure [Unknown]
  - Accidental overdose [Fatal]
  - Circulatory collapse [Fatal]
  - Metabolic acidosis [Recovering/Resolving]

NARRATIVE: CASE EVENT DATE: 2011
